FAERS Safety Report 14118069 (Version 1)
Quarter: 2017Q4

REPORT INFORMATION
  Report Type: Spontaneous
  Country: US (occurrence: US)
  Receive Date: 20171023
  Receipt Date: 20171023
  Transmission Date: 20180321
  Serious: No
  Sender: FDA-Public Use
  Company Number: US-ALLERGAN-1673135US

PATIENT
  Age: 68 Year
  Sex: Female
  Weight: 47.62 kg

DRUGS (11)
  1. LINZESS [Suspect]
     Active Substance: LINACLOTIDE
     Dosage: 145 ?G, EVERY 3 DAYS
     Route: 048
  2. OMEPRAZOLE. [Concomitant]
     Active Substance: OMEPRAZOLE
     Indication: EPIGASTRIC DISCOMFORT
     Dosage: UNK
     Route: 048
     Dates: start: 20160627
  3. TOPAMAX [Concomitant]
     Active Substance: TOPIRAMATE
     Indication: OCCIPITAL NEURALGIA
  4. TEGRETOL [Concomitant]
     Active Substance: CARBAMAZEPINE
     Indication: OCCIPITAL NEURALGIA
  5. LINZESS [Suspect]
     Active Substance: LINACLOTIDE
     Indication: IRRITABLE BOWEL SYNDROME
     Dosage: 145 ?G, QD
     Route: 048
  6. VYTORIN [Concomitant]
     Active Substance: EZETIMIBE\SIMVASTATIN
     Indication: BLOOD CHOLESTEROL INCREASED
     Dosage: UNK
     Route: 048
  7. CITRUCEL [Concomitant]
     Active Substance: METHYLCELLULOSE (4000 MPA.S)
     Indication: CONSTIPATION
     Dosage: UNK
     Route: 048
  8. DONNATAL [Concomitant]
     Active Substance: ATROPINE SULFATE\HYOSCYAMINE SULFATE\PHENOBARBITAL\SCOPOLAMINE HYDROBROMIDE
     Indication: ABDOMINAL PAIN
     Dosage: UNK
     Route: 048
  9. TOPAMAX [Concomitant]
     Active Substance: TOPIRAMATE
     Indication: MIGRAINE
     Dosage: UNK
     Route: 048
  10. TEGRETOL [Concomitant]
     Active Substance: CARBAMAZEPINE
     Indication: MIGRAINE
     Dosage: UNK
     Route: 048
  11. MIRALAX [Concomitant]
     Active Substance: POLYETHYLENE GLYCOL 3350
     Indication: CONSTIPATION
     Dosage: UNK
     Route: 048

REACTIONS (5)
  - Diarrhoea [Not Recovered/Not Resolved]
  - Orthostatic hypotension [Not Recovered/Not Resolved]
  - Dehydration [Not Recovered/Not Resolved]
  - Drug ineffective [Unknown]
  - Intentional product misuse [Unknown]

NARRATIVE: CASE EVENT DATE: 20161012
